FAERS Safety Report 10309119 (Version 1)
Quarter: 2014Q3

REPORT INFORMATION
  Report Type: Spontaneous
  Country: GB (occurrence: GB)
  Receive Date: 20140716
  Receipt Date: 20140716
  Transmission Date: 20150326
  Serious: Yes (Other)
  Sender: FDA-Public Use
  Company Number: GB-009507513-1407GBR006106

PATIENT
  Age: 23 Year
  Sex: Female

DRUGS (1)
  1. NEXPLANON [Suspect]
     Active Substance: ETONOGESTREL
     Indication: CONTRACEPTION
     Route: 059
     Dates: start: 20130416, end: 20140702

REACTIONS (3)
  - Menstruation irregular [Unknown]
  - Menorrhagia [Unknown]
  - Device breakage [Unknown]

NARRATIVE: CASE EVENT DATE: 20140410
